FAERS Safety Report 7523660-5 (Version None)
Quarter: 2011Q2

REPORT INFORMATION
  Report Type: 
  Country: None (occurrence: None)
  Receive Date: 20110603
  Receipt Date: 20110527
  Transmission Date: 20111010
  Serious: Yes (Hospitalization, Other)
  Sender: FDA-Public Use
  Company Number: US-ABBOTT-11P-163-0729658-00

PATIENT
  Sex: Female

DRUGS (8)
  1. OVACON [Concomitant]
     Indication: PROPHYLAXIS
     Dates: end: 20110201
  2. MORPHINE [Suspect]
     Indication: PRODUCT USED FOR UNKNOWN INDICATION
     Route: 048
  3. OVACON [Concomitant]
     Indication: OVARIAN CYST
  4. SORIATANE [Concomitant]
     Indication: PSORIATIC ARTHROPATHY
     Dosage: TWICE DAILY AS NEEDED
  5. HUMIRA [Suspect]
     Indication: PSORIATIC ARTHROPATHY
     Dates: start: 20080801, end: 20110329
  6. NEURONTIN [Suspect]
     Indication: PRODUCT USED FOR UNKNOWN INDICATION
     Dates: start: 20110526
  7. AMBIEN [Concomitant]
     Indication: INSOMNIA
     Dosage: AT NIGHT
     Route: 048
  8. KLONOPIN [Concomitant]
     Indication: INSOMNIA
     Dosage: AT NIGHT
     Route: 048

REACTIONS (25)
  - HYPOAESTHESIA [None]
  - HYPOTHYROIDISM [None]
  - SPINAL OSTEOARTHRITIS [None]
  - WEIGHT INCREASED [None]
  - PAIN IN EXTREMITY [None]
  - MUSCLE SPASMS [None]
  - MALAISE [None]
  - PALLOR [None]
  - INTERVERTEBRAL DISC PROTRUSION [None]
  - CHOLECYSTITIS INFECTIVE [None]
  - DEPRESSION [None]
  - MENSTRUAL DISORDER [None]
  - BACK INJURY [None]
  - INTERVERTEBRAL DISC DISPLACEMENT [None]
  - ALOPECIA [None]
  - HYPERHIDROSIS [None]
  - UTERINE DISORDER [None]
  - MUSCULAR WEAKNESS [None]
  - MOBILITY DECREASED [None]
  - DIZZINESS [None]
  - PAIN [None]
  - PARAESTHESIA [None]
  - NERVE COMPRESSION [None]
  - GAIT DISTURBANCE [None]
  - SOMNOLENCE [None]
